FAERS Safety Report 17440084 (Version 2)
Quarter: 2025Q3

REPORT INFORMATION
  Report Type: Spontaneous
  Country: EU (occurrence: EU)
  Receive Date: 20200220
  Receipt Date: 20250710
  Transmission Date: 20251020
  Serious: Yes (Other)
  Sender: UCB
  Company Number: EU-UCBSA-2020007243

PATIENT
  Sex: Female

DRUGS (3)
  1. LEVETIRACETAM [Suspect]
     Active Substance: LEVETIRACETAM
     Indication: Petit mal epilepsy
  2. LEVETIRACETAM [Suspect]
     Active Substance: LEVETIRACETAM
     Indication: Off label use
  3. VALPROIC ACID [Concomitant]
     Active Substance: VALPROIC ACID
     Indication: Petit mal epilepsy

REACTIONS (5)
  - Petit mal epilepsy [Not Recovered/Not Resolved]
  - Psychomotor hyperactivity [Unknown]
  - Irritability [Unknown]
  - Behaviour disorder [Unknown]
  - Off label use [Unknown]
